FAERS Safety Report 7792622-5 (Version None)
Quarter: 2011Q4

REPORT INFORMATION
  Report Type: 
  Country: None (occurrence: None)
  Receive Date: 20111003
  Receipt Date: 20110922
  Transmission Date: 20120403
  Serious: Yes (Hospitalization)
  Sender: FDA-Public Use
  Company Number: FR-ASTRAZENECA-2011SE57598

PATIENT
  Sex: Male

DRUGS (10)
  1. NEXIUM [Suspect]
     Indication: GASTRIC ULCER
     Route: 048
  2. DEPAKENE [Suspect]
     Indication: EPILEPSY
     Route: 048
  3. TEGRETOL [Suspect]
     Indication: EPILEPSY
     Route: 048
  4. BIPERIDYS [Concomitant]
  5. GAVISCON [Concomitant]
  6. PIASCLEDINE [Concomitant]
  7. NEULEPTIL [Concomitant]
  8. EFFEXOR XR [Suspect]
     Indication: DEPRESSION
     Route: 048
     Dates: start: 20110901, end: 20110908
  9. POLYETHYLENE GLYCOL [Concomitant]
  10. NOZINAN [Concomitant]

REACTIONS (2)
  - HYPERAMMONAEMIA [None]
  - HYPONATRAEMIA [None]
